FAERS Safety Report 6342775-0 (Version None)
Quarter: 2009Q3

REPORT INFORMATION
  Report Type: 
  Country: None (occurrence: None)
  Receive Date: 20090908
  Receipt Date: 20090414
  Transmission Date: 20100115
  Serious: Yes (Other)
  Sender: FDA-Public Use
  Company Number: TW-ROCHE-627502

PATIENT
  Sex: Female
  Weight: 52 kg

DRUGS (8)
  1. TAMIFLU [Suspect]
     Indication: INFLUENZA
     Route: 048
     Dates: start: 20090215, end: 20090220
  2. ACETAMINOPHEN [Concomitant]
     Indication: INFLUENZA
     Dosage: DOSE 300.
     Route: 042
     Dates: start: 20090215, end: 20090215
  3. ACETAMINOPHEN [Concomitant]
     Dosage: DOSE 300.
     Route: 042
     Dates: start: 20090218, end: 20090218
  4. ETHENZAMIDE [Concomitant]
     Indication: INFLUENZA
     Dosage: FREQUENCY: PER DAY.
     Route: 048
     Dates: start: 20090215, end: 20090215
  5. CODEINE PHOSPHATE [Concomitant]
     Indication: INFLUENZA
     Dosage: FREQUENCY: PER DAY.
     Route: 048
     Dates: start: 20090215, end: 20090215
  6. CHLORPHENIRAMINE MALEATE [Concomitant]
     Indication: INFLUENZA
     Route: 048
     Dates: start: 20090215, end: 20090215
  7. METHYLEPHEDRINE HYDROCHLORIDE [Concomitant]
     Indication: INFLUENZA
     Route: 048
     Dates: start: 20090215, end: 20090215
  8. ANHYDROUS CAFFEINE [Concomitant]
     Indication: INFLUENZA
     Route: 048
     Dates: start: 20090215, end: 20090215

REACTIONS (2)
  - NO ADVERSE EVENT [None]
  - PREGNANCY [None]
